FAERS Safety Report 21716876 (Version 5)
Quarter: 2024Q1

REPORT INFORMATION
  Report Type: Spontaneous
  Country: JP (occurrence: JP)
  Receive Date: 20221212
  Receipt Date: 20240129
  Transmission Date: 20240410
  Serious: Yes (Other)
  Sender: FDA-Public Use
  Company Number: JP-OTSUKA-2022_054309

PATIENT
  Age: 20 Year
  Sex: Male

DRUGS (3)
  1. REXULTI [Suspect]
     Active Substance: BREXPIPRAZOLE
     Indication: Insomnia
     Dosage: 2 MG/DAY
     Route: 048
     Dates: start: 20210810, end: 20210815
  2. REXULTI [Suspect]
     Active Substance: BREXPIPRAZOLE
     Indication: Hallucination, auditory
     Dosage: 1 MG/DAY
     Route: 048
     Dates: start: 20210702, end: 20210809
  3. RILMAZAFONE HYDROCHLORIDE [Suspect]
     Active Substance: RILMAZAFONE HYDROCHLORIDE
     Indication: Product used for unknown indication
     Dosage: 2 MG/DAY
     Route: 048
     Dates: start: 20210702, end: 20210815

REACTIONS (2)
  - Hallucination, auditory [Recovered/Resolved]
  - Soliloquy [Recovered/Resolved]

NARRATIVE: CASE EVENT DATE: 20210816
